FAERS Safety Report 22592654 (Version 1)
Quarter: 2023Q2

REPORT INFORMATION
  Report Type: Spontaneous
  Country: BR (occurrence: BR)
  Receive Date: 20230613
  Receipt Date: 20230613
  Transmission Date: 20230722
  Serious: Yes (Other)
  Sender: FDA-Public Use
  Company Number: BR-CHEPLA-2023007063

PATIENT
  Sex: Male
  Weight: 84 kg

DRUGS (3)
  1. CLONAZEPAM [Suspect]
     Active Substance: CLONAZEPAM
     Indication: Insomnia
     Dosage: WHEN HE GOES TO SLEEP?DAILY DOSE: 20 DROP
     Route: 048
  2. CLONAZEPAM [Suspect]
     Active Substance: CLONAZEPAM
     Indication: Insomnia
     Dosage: 10 DROPS BEFORE GOING TO SLEEP AND 10 DROPS WHEN WAKING UP, DURING THE NIGHT?DAILY DOSE: 20 DROP
     Route: 048
  3. GLIFAGE [Concomitant]
     Active Substance: METFORMIN HYDROCHLORIDE
     Indication: Diabetes mellitus
     Dosage: SINCE YEARS?DAILY DOSE: 1 DOSAGE FORM
     Route: 048

REACTIONS (4)
  - Polycythaemia vera [Not Recovered/Not Resolved]
  - Oedema [Recovered/Resolved]
  - Incorrect dose administered by product [Not Recovered/Not Resolved]
  - Product use in unapproved indication [Not Recovered/Not Resolved]

NARRATIVE: CASE EVENT DATE: 19830101
